FAERS Safety Report 10560266 (Version 2)
Quarter: 2015Q2

REPORT INFORMATION
  Report Type: Report from Study
  Country: TR (occurrence: TR)
  Receive Date: 20141103
  Receipt Date: 20150527
  Transmission Date: 20150821
  Serious: Yes (Other)
  Sender: FDA-Public Use
  Company Number: TR-NOVOPROD-427227

PATIENT
  Age: 26 Year
  Sex: Female
  Weight: 80 kg

DRUGS (5)
  1. PROGESTAN [Concomitant]
     Active Substance: PROGESTERONE
     Indication: HORMONE THERAPY
     Dosage: 1X1
     Route: 048
     Dates: start: 201409
  2. NOVORAPID [Suspect]
     Active Substance: INSULIN ASPART
     Indication: GESTATIONAL DIABETES
     Dosage: 160 U, QD
     Route: 058
     Dates: start: 20141015
  3. FOLIC ACID. [Concomitant]
     Active Substance: FOLIC ACID
     Indication: VITAMIN SUPPLEMENTATION
     Dosage: 1X1
     Route: 048
     Dates: start: 201408, end: 201409
  4. HUMULIN N [Concomitant]
     Active Substance: INSULIN HUMAN
     Indication: GESTATIONAL DIABETES
     Dosage: 90 U, QD
     Route: 058
     Dates: start: 20141015
  5. DECAVIT                            /06014801/ [Concomitant]
     Indication: VITAMIN SUPPLEMENTATION
     Dosage: 1X1
     Route: 048
     Dates: start: 201410

REACTIONS (3)
  - Abortion spontaneous [Recovered/Resolved]
  - Vanishing twin syndrome [Recovered/Resolved]
  - Exposure during pregnancy [Recovered/Resolved]

NARRATIVE: CASE EVENT DATE: 20141015
